FAERS Safety Report 24644093 (Version 1)
Quarter: 2024Q4

REPORT INFORMATION
  Report Type: Spontaneous
  Country: VN (occurrence: VN)
  Receive Date: 20241120
  Receipt Date: 20241120
  Transmission Date: 20250115
  Serious: Yes (Other)
  Sender: ASTELLAS
  Company Number: VN-ASTELLAS-2024-AER-018699

PATIENT
  Sex: Male
  Weight: 70 kg

DRUGS (9)
  1. TACROLIMUS [Suspect]
     Active Substance: TACROLIMUS
     Indication: Immunosuppression
     Route: 065
  2. METHYLPREDNISOLONE [Concomitant]
     Active Substance: METHYLPREDNISOLONE
     Indication: Glomerulonephritis membranoproliferative
     Dosage: 500MG/DAY X 3 DAYS
     Route: 065
  3. METHYLPREDNISOLONE [Concomitant]
     Active Substance: METHYLPREDNISOLONE
     Indication: Glomerulonephritis
     Dosage: MAINTAIN METHYLPREDNISOLONE ORAL 32MG/DAY+ MMF, COMBINED WITH OTHER SUPPORTIVE TREATMENTS
     Route: 048
  4. METHYLPREDNISOLONE [Concomitant]
     Active Substance: METHYLPREDNISOLONE
     Dosage: CONTINUED WITH GRADUALLY DECREASING DOSE + MMF
     Route: 065
  5. MYCOPHENOLATE MOFETIL [Concomitant]
     Active Substance: MYCOPHENOLATE MOFETIL
     Indication: Glomerulonephritis membranoproliferative
     Dosage: COMBINED WITH OTHER SUPPORTIVE TREATMENTS
     Route: 065
  6. MYCOPHENOLATE MOFETIL [Concomitant]
     Active Substance: MYCOPHENOLATE MOFETIL
     Indication: Glomerulonephritis
  7. PREDNISOLONE [Concomitant]
     Active Substance: PREDNISOLONE
     Indication: Immunosuppression
     Route: 065
  8. PREDNISOLONE [Concomitant]
     Active Substance: PREDNISOLONE
     Indication: Glomerulonephritis
     Dosage: INCREASED DOSE (MAINTAINED DOSE)
     Route: 065
  9. SOLU-MEDROL [Concomitant]
     Active Substance: METHYLPREDNISOLONE SODIUM SUCCINATE
     Indication: Glomerulonephritis
     Dosage: SOLUMEDROL BOLUS 500MG/DAY X 3 DAYS + PEX 5 TIMES
     Route: 065

REACTIONS (5)
  - IgA nephropathy [Unknown]
  - Disease recurrence [Unknown]
  - Renal transplant failure [Unknown]
  - Glomerulonephritis rapidly progressive [Unknown]
  - IgA nephropathy [Unknown]

NARRATIVE: CASE EVENT DATE: 20220422
